FAERS Safety Report 14022034 (Version 1)
Quarter: 2017Q3

REPORT INFORMATION
  Report Type: Spontaneous
  Country: US (occurrence: US)
  Receive Date: 20170928
  Receipt Date: 20170928
  Transmission Date: 20171128
  Serious: No
  Sender: FDA-Public Use
  Company Number: US-BAYER-2017-186201

PATIENT
  Age: 74 Year
  Sex: Female
  Weight: 47.98 kg

DRUGS (2)
  1. PAROXETINE. [Concomitant]
     Active Substance: PAROXETINE
     Dosage: UNK
  2. MIRALAX [Suspect]
     Active Substance: POLYETHYLENE GLYCOL 3350
     Indication: CONSTIPATION
     Dosage: 1 DF, UNK
     Route: 048
     Dates: start: 20170629

REACTIONS (1)
  - Drug effect delayed [None]
